FAERS Safety Report 19058368 (Version 1)
Quarter: 2021Q1

REPORT INFORMATION
  Report Type: Spontaneous
  Country: DE (occurrence: DE)
  Receive Date: 20210324
  Receipt Date: 20210324
  Transmission Date: 20210420
  Serious: Yes (Other)
  Sender: FDA-Public Use
  Company Number: DE-JNJFOC-20210346066

PATIENT
  Age: 38 Year
  Sex: Male
  Weight: 33 kg

DRUGS (3)
  1. IMODIUM [Suspect]
     Active Substance: LOPERAMIDE HYDROCHLORIDE
     Indication: GASTROINTESTINAL HYPERMOTILITY
     Route: 065
  2. OLIMEL [Suspect]
     Active Substance: AMINO ACIDS\DEXTROSE\SOYBEAN OIL
     Indication: PARENTERAL NUTRITION
     Dosage: INFUSED WITHIN 18 HOURS
     Route: 065
  3. OPIUM [PAPAVER SOMNIFERUM] [Suspect]
     Active Substance: OPIUM
     Indication: GASTROINTESTINAL HYPERMOTILITY
     Route: 065

REACTIONS (3)
  - Weight decreased [Unknown]
  - Dehydration [Unknown]
  - Renal impairment [Unknown]

NARRATIVE: CASE EVENT DATE: 202103
